FAERS Safety Report 7831270-5 (Version None)
Quarter: 2011Q4

REPORT INFORMATION
  Report Type: 
  Country: None (occurrence: None)
  Receive Date: 20111021
  Receipt Date: 20111018
  Transmission Date: 20120403
  Serious: No
  Sender: FDA-Public Use
  Company Number: US-TEVA-304074USA

PATIENT
  Sex: Female

DRUGS (3)
  1. CHORIONIC GONADOTROPIN [Concomitant]
  2. CLARAVIS [Suspect]
     Dosage: 40 MILLIGRAM;
     Route: 048
     Dates: start: 20110407, end: 20110831
  3. LEVONORGESTREL [Concomitant]
     Indication: CONTRACEPTION
     Dosage: IUD
     Route: 015

REACTIONS (1)
  - PREGNANCY TEST FALSE POSITIVE [None]
